FAERS Safety Report 8810096 (Version 3)
Quarter: 2012Q4

REPORT INFORMATION
  Report Type: 
  Country: HU (occurrence: HU)
  Receive Date: 20120926
  Receipt Date: 20121105
  Transmission Date: 20130627
  Serious: Yes (Death, Hospitalization, Other)
  Sender: FDA-Public Use
  Company Number: HU-ELI_LILLY_AND_COMPANY-HU201209006613

PATIENT
  Sex: Male
  Weight: 160 kg

DRUGS (6)
  1. ALIMTA [Suspect]
     Indication: ADENOCARCINOMA
     Dosage: 500 mg, UNK
     Dates: start: 20120905
  2. ALIMTA [Suspect]
     Dosage: 100 mg, UNK
     Dates: start: 20120905
  3. PLENDIL [Concomitant]
     Dosage: 10 mg, qd
  4. COVEREX [Concomitant]
     Dosage: 5 mg, qd
  5. NEBILET [Concomitant]
     Dosage: 1 DF, qd
  6. CISPLATIN [Concomitant]

REACTIONS (6)
  - Sepsis [Fatal]
  - Neutropenia [Unknown]
  - Pyrexia [Unknown]
  - Azotaemia [Unknown]
  - Granulocytopenia [Unknown]
  - Thrombocytopenia [Unknown]
